FAERS Safety Report 13367425 (Version 1)
Quarter: 2017Q1

REPORT INFORMATION
  Report Type: Spontaneous
  Country: US (occurrence: US)
  Receive Date: 20170324
  Receipt Date: 20170324
  Transmission Date: 20170429
  Serious: Yes (Hospitalization)
  Sender: FDA-Public Use
  Company Number: US-TORRENT-00002619

PATIENT
  Age: 3 Year
  Sex: Male

DRUGS (1)
  1. AMLODIPINE BESYLATE. [Suspect]
     Active Substance: AMLODIPINE BESYLATE

REACTIONS (5)
  - Toxicity to various agents [Unknown]
  - Fall [Unknown]
  - Bradycardia [Unknown]
  - Pallor [Unknown]
  - Hypoperfusion [Unknown]
